FAERS Safety Report 4467732-0 (Version None)
Quarter: 2004Q4

REPORT INFORMATION
  Report Type: 
  Country: None (occurrence: None)
  Receive Date: 20041001
  Receipt Date: 20040903
  Transmission Date: 20050328
  Serious: Yes (Other)
  Sender: FDA-Public Use
  Company Number: 09-24-2004

PATIENT
  Sex: Female

DRUGS (2)
  1. EXPA-SYL [Suspect]
     Indication: GINGIVAL OPERATION
     Dosage: F: ONCE R: 047, 060
     Dates: start: 20040421, end: 20040421
  2. EXPA-SYL [Suspect]
     Indication: SURGICAL HAEMOSTASIS
     Dosage: F: ONCE R: 047, 060
     Dates: start: 20040421, end: 20040421

REACTIONS (7)
  - BONE DISORDER [None]
  - DESQUAMATION GINGIVAL [None]
  - GINGIVAL DISCOLOURATION [None]
  - GINGIVAL DISORDER [None]
  - GINGIVAL OEDEMA [None]
  - GINGIVAL PAIN [None]
  - TOOTH DISORDER [None]
